FAERS Safety Report 7735648-X (Version None)
Quarter: 2011Q3

REPORT INFORMATION
  Report Type: 
  Country: None (occurrence: None)
  Receive Date: 20110907
  Receipt Date: 20110824
  Transmission Date: 20111222
  Serious: Yes (Other)
  Sender: FDA-Public Use
  Company Number: CA-GENENTECH-323731

PATIENT
  Sex: Male

DRUGS (1)
  1. XOLAIR [Suspect]
     Indication: ASTHMA
     Dosage: 225 MG, Q2W
     Route: 058
     Dates: start: 20060308

REACTIONS (8)
  - URINARY RETENTION [None]
  - BACK PAIN [None]
  - LACRIMATION INCREASED [None]
  - RENAL DISORDER [None]
  - ABDOMINAL DISCOMFORT [None]
  - ABDOMINAL PAIN [None]
  - LYMPHADENOPATHY [None]
  - GLUCOSE TOLERANCE IMPAIRED [None]
